FAERS Safety Report 9306862 (Version 1)
Quarter: 2013Q2

REPORT INFORMATION
  Report Type: Spontaneous
  Country: US (occurrence: US)
  Receive Date: 20130523
  Receipt Date: 20130523
  Transmission Date: 20140414
  Serious: Yes (Other)
  Sender: FDA-Public Use
  Company Number: CHPA2013US008382

PATIENT
  Age: 72 Year
  Sex: Female

DRUGS (1)
  1. BUCKLEY^S MIXTURE (USA) [Suspect]
     Indication: THROAT IRRITATION
     Dosage: UNK, UNK
     Route: 048

REACTIONS (3)
  - Bronchitis [Unknown]
  - Disease recurrence [Unknown]
  - Middle insomnia [Unknown]
